FAERS Safety Report 9307758 (Version 2)
Quarter: 2013Q2

REPORT INFORMATION
  Report Type: Spontaneous
  Country: US (occurrence: US)
  Receive Date: 20130524
  Receipt Date: 20130619
  Transmission Date: 20140414
  Serious: Yes (Death)
  Sender: FDA-Public Use
  Company Number: US-INCYTE CORPORATION-2013IN001005

PATIENT
  Sex: Female

DRUGS (3)
  1. JAKAFI [Suspect]
     Indication: MYELOFIBROSIS
     Dosage: 25 MG, BID (TWO 5 MG TABLETS + ONE 15 MG TABLET)
     Route: 048
     Dates: start: 20130227
  2. JAKAFI [Suspect]
     Dosage: 25 MG, BID (TWO 5 MG TABLETS + ONE 15 MG TABLET)
     Route: 048
     Dates: start: 20130227
  3. JAKAFI [Suspect]
     Dosage: 15 MG, BID
     Route: 048

REACTIONS (1)
  - Death [Fatal]
